FAERS Safety Report 26122553 (Version 1)
Quarter: 2025Q4

REPORT INFORMATION
  Report Type: Spontaneous
  Country: US (occurrence: None)
  Receive Date: 20251204
  Receipt Date: 20251204
  Transmission Date: 20260118
  Serious: No
  Sender: FDA-CTU
  Company Number: None

PATIENT

DRUGS (1)
  1. LAMICTAL [Suspect]
     Active Substance: LAMOTRIGINE

REACTIONS (5)
  - Brain fog [None]
  - Confusional state [None]
  - Frustration tolerance decreased [None]
  - Feeling hot [None]
  - Chest pain [None]

NARRATIVE: CASE EVENT DATE: 20251203
